FAERS Safety Report 4867529-3 (Version None)
Quarter: 2005Q4

REPORT INFORMATION
  Report Type: 
  Country: None (occurrence: None)
  Receive Date: 20051227
  Receipt Date: 20051227
  Transmission Date: 20060501
  Serious: Yes (Disabling)
  Sender: FDA-Public Use
  Company Number: None

PATIENT
  Sex: Female
  Weight: 59.4212 kg

DRUGS (3)
  1. DOCETAXEL 75 MG/M2 [Suspect]
     Indication: BREAST CANCER
     Dosage: 75 MG/M2 IV Q 3 WKS
     Route: 042
     Dates: start: 20051206
  2. DOXORUBICIN [Concomitant]
  3. CYCLOPHOSPHAMIDE [Concomitant]

REACTIONS (4)
  - EYELID OEDEMA [None]
  - LACRIMATION INCREASED [None]
  - NEUROPATHY PERIPHERAL [None]
  - VISION BLURRED [None]
